FAERS Safety Report 4884933-8 (Version None)
Quarter: 2006Q1

REPORT INFORMATION
  Report Type: 
  Country: None (occurrence: None)
  Receive Date: 20060119
  Receipt Date: 20051216
  Transmission Date: 20060701
  Serious: Yes (Other)
  Sender: FDA-Public Use
  Company Number: 2005CG02135

PATIENT
  Age: 70 Year
  Sex: Male

DRUGS (8)
  1. CRESTOR [Suspect]
     Route: 048
     Dates: start: 20050408, end: 20050501
  2. ALDACTONE [Concomitant]
  3. COVERSYL [Concomitant]
  4. KREDEX [Concomitant]
     Dosage: 12.5 MG QAM + 6.25 MG HS
  5. DISCOTRINE [Concomitant]
  6. PREVISCAN [Concomitant]
  7. LEVOTHYROXINE SODIUM [Concomitant]
     Route: 048
  8. OMEPRAZOLE [Concomitant]

REACTIONS (4)
  - ASTHENIA [None]
  - CONFUSIONAL STATE [None]
  - HYPONATRAEMIA [None]
  - NAUSEA [None]
